FAERS Safety Report 5353397-2 (Version None)
Quarter: 2007Q2

REPORT INFORMATION
  Report Type: 
  Country: None (occurrence: None)
  Receive Date: 20070612
  Receipt Date: 20070530
  Transmission Date: 20071010
  Serious: Yes (Hospitalization, Other)
  Sender: FDA-Public Use
  Company Number: PHBS2007JP09120

PATIENT
  Sex: Female

DRUGS (2)
  1. NEORAL [Suspect]
     Indication: NEPHROTIC SYNDROME
     Route: 048
     Dates: start: 20050101
  2. ADRENOCORTICOTROPHIC HORMONE [Concomitant]

REACTIONS (7)
  - CONVULSION [None]
  - DEPRESSED LEVEL OF CONSCIOUSNESS [None]
  - DISEASE RECURRENCE [None]
  - HEADACHE [None]
  - NEPHROTIC SYNDROME [None]
  - PARALYSIS [None]
  - TOXIC INDUCED ENCEPHALOPATHY [None]
